FAERS Safety Report 6487211-9 (Version None)
Quarter: 2009Q4

REPORT INFORMATION
  Report Type: 
  Country: None (occurrence: None)
  Receive Date: 20091210
  Receipt Date: 20091203
  Transmission Date: 20100525
  Serious: Yes (Hospitalization)
  Sender: FDA-Public Use
  Company Number: CA-WYE-H12306809

PATIENT
  Sex: Male

DRUGS (1)
  1. TECTA [Suspect]
     Indication: PEPTIC ULCER
     Route: 048
     Dates: start: 20090326, end: 20090328

REACTIONS (4)
  - HEPATIC FUNCTION ABNORMAL [None]
  - RENAL IMPAIRMENT [None]
  - STEVENS-JOHNSON SYNDROME [None]
  - THROMBOCYTOPENIA [None]
